FAERS Safety Report 21493708 (Version 1)
Quarter: 2022Q4

REPORT INFORMATION
  Report Type: Spontaneous
  Country: IT (occurrence: IT)
  Receive Date: 20221021
  Receipt Date: 20221021
  Transmission Date: 20230113
  Serious: Yes (Life-Threatening, Hospitalization, Other)
  Sender: FDA-Public Use
  Company Number: IT-NOVARTISPH-NVSC2020IT359709

PATIENT
  Age: 93 Year
  Sex: Female

DRUGS (7)
  1. BUDESONIDE [Suspect]
     Active Substance: BUDESONIDE
     Indication: Peripheral venous disease
     Dosage: UNK
     Route: 055
  2. BUDESONIDE [Suspect]
     Active Substance: BUDESONIDE
     Indication: Chronic obstructive pulmonary disease
  3. BUDESONIDE [Suspect]
     Active Substance: BUDESONIDE
     Indication: Upper respiratory tract infection
  4. FONDAPARINUX SODIUM [Suspect]
     Active Substance: FONDAPARINUX SODIUM
     Indication: Venous thrombosis
     Dosage: 7.5 MG, QD
     Route: 058
  5. FONDAPARINUX SODIUM [Suspect]
     Active Substance: FONDAPARINUX SODIUM
     Indication: Venous occlusion
     Dosage: 5 MG, QD
     Route: 058
  6. METHYLPREDNISOLONE [Suspect]
     Active Substance: METHYLPREDNISOLONE
     Indication: Peripheral venous disease
     Dosage: UNK
     Route: 065
  7. METHYLPREDNISOLONE [Suspect]
     Active Substance: METHYLPREDNISOLONE
     Indication: Chronic obstructive pulmonary disease

REACTIONS (5)
  - Subcutaneous haematoma [Recovered/Resolved]
  - Skin necrosis [Recovered/Resolved]
  - Compartment syndrome [Recovered/Resolved]
  - Skin ulcer [Recovered/Resolved]
  - Skin atrophy [Recovered/Resolved]
